FAERS Safety Report 21170643 (Version 2)
Quarter: 2022Q3

REPORT INFORMATION
  Report Type: Spontaneous
  Country: DE (occurrence: None)
  Receive Date: 20220804
  Receipt Date: 20220810
  Transmission Date: 20221027
  Serious: Yes (Other)
  Sender: FDA-Public Use
  Company Number: DE-Eisai Medical Research-EC-2022-120452

PATIENT
  Age: 2 Year
  Sex: Male
  Weight: 12 kg

DRUGS (2)
  1. INOVELON [Suspect]
     Active Substance: RUFINAMIDE
     Indication: Product used for unknown indication
     Route: 065
     Dates: start: 202207, end: 202207
  2. INOVELON [Suspect]
     Active Substance: RUFINAMIDE
     Route: 065
     Dates: start: 202207, end: 20220731

REACTIONS (2)
  - Hepatitis cholestatic [Unknown]
  - Adenovirus infection [Unknown]

NARRATIVE: CASE EVENT DATE: 20220701
